FAERS Safety Report 8316845-1 (Version None)
Quarter: 2012Q2

REPORT INFORMATION
  Report Type: 
  Country: None (occurrence: None)
  Receive Date: 20120425
  Receipt Date: 20120410
  Transmission Date: 20120825
  Serious: Yes (Death)
  Sender: FDA-Public Use
  Company Number: 2012-173

PATIENT
  Age: 93 Year
  Sex: Male

DRUGS (6)
  1. NORVASC [Concomitant]
  2. LEXAPRO [Concomitant]
  3. GLIPIZIDE [Concomitant]
  4. FAZACLO ODT [Suspect]
     Dosage: 12.5 - 25 MG, QD, ORAL
     Route: 048
     Dates: start: 20120402, end: 20120408
  5. TRAZODONE HCL [Concomitant]
  6. COREG [Concomitant]

REACTIONS (1)
  - PNEUMONIA [None]
